FAERS Safety Report 19930184 (Version 1)
Quarter: 2021Q4

REPORT INFORMATION
  Report Type: Spontaneous
  Country: US (occurrence: US)
  Receive Date: 20211007
  Receipt Date: 20211007
  Transmission Date: 20220303
  Serious: Yes (Other)
  Sender: FDA-Public Use
  Company Number: US-EUSA PHARMA (UK) LIMITED-2021US000580

PATIENT

DRUGS (1)
  1. SYLVANT [Suspect]
     Active Substance: SILTUXIMAB
     Indication: Castleman^s disease
     Dosage: 11 MG/KG, EVERY 3 WEEKS
     Route: 042

REACTIONS (1)
  - Immune thrombocytopenia [Unknown]
